FAERS Safety Report 6376476-X (Version None)
Quarter: 2009Q3

REPORT INFORMATION
  Report Type: 
  Country: None (occurrence: None)
  Receive Date: 20090922
  Receipt Date: 20090922
  Transmission Date: 20100115
  Serious: Yes (Congenital Anomaly)
  Sender: FDA-Public Use
  Company Number: None

PATIENT
  Sex: Female
  Weight: 1.8 kg

DRUGS (2)
  1. AUGMENTIN XR [Suspect]
     Indication: URINARY TRACT INFECTION
     Dosage: 625MG*2/DAY TWICE DAILY PO
     Route: 048
  2. SOTRET [Suspect]
     Indication: ACNE
     Dosage: 20MG*2/DAY DAILYES PO
     Route: 048

REACTIONS (1)
  - CONGENITAL CENTRAL NERVOUS SYSTEM ANOMALY [None]
